FAERS Safety Report 7644931-8 (Version None)
Quarter: 2011Q3

REPORT INFORMATION
  Report Type: 
  Country: None (occurrence: None)
  Receive Date: 20110729
  Receipt Date: 20110708
  Transmission Date: 20111222
  Serious: Yes (Hospitalization)
  Sender: FDA-Public Use
  Company Number: US-GLAXOSMITHKLINE-A0869256A

PATIENT
  Age: 51 Year
  Sex: Male
  Weight: 96 kg

DRUGS (6)
  1. GLUCOTROL [Concomitant]
  2. DIOVAN [Concomitant]
  3. GLUCOPHAGE [Concomitant]
  4. AVANDIA [Suspect]
     Indication: DIABETES MELLITUS
     Dosage: 4MG PER DAY
     Route: 048
     Dates: start: 19990101, end: 20030201
  5. CHLORPHENIRAMINE MALEATE [Concomitant]
  6. ACIPHEX [Concomitant]

REACTIONS (2)
  - CARDIAC FAILURE CONGESTIVE [None]
  - MYOCARDIAL INFARCTION [None]
